FAERS Safety Report 15985724 (Version 1)
Quarter: 2019Q1

REPORT INFORMATION
  Report Type: Spontaneous
  Country: US (occurrence: US)
  Receive Date: 20190220
  Receipt Date: 20190220
  Transmission Date: 20190418
  Serious: Yes (Hospitalization, Disabling, Other)
  Sender: FDA-Public Use
  Company Number: None

PATIENT
  Age: 58 Year
  Sex: Male
  Weight: 78.3 kg

DRUGS (1)
  1. VIBERZI [Suspect]
     Active Substance: ELUXADOLINE
     Indication: IRRITABLE BOWEL SYNDROME
     Route: 048
     Dates: start: 20170917, end: 20171231

REACTIONS (3)
  - Pancreatic enzymes decreased [None]
  - Pancreatic atrophy [None]
  - Pancreatitis [None]

NARRATIVE: CASE EVENT DATE: 20170920
